FAERS Safety Report 7516157-X (Version None)
Quarter: 2011Q2

REPORT INFORMATION
  Report Type: 
  Country: None (occurrence: None)
  Receive Date: 20110601
  Receipt Date: 20110530
  Transmission Date: 20111010
  Serious: Yes (Death, Hospitalization)
  Sender: FDA-Public Use
  Company Number: NL-B.I. PHARMACEUTICALS,INC./RIDGEFIELD-2011-NL-00210NL

PATIENT
  Age: 73 Year
  Sex: Female

DRUGS (3)
  1. COMBIVENT [Suspect]
     Indication: CHRONIC OBSTRUCTIVE PULMONARY DISEASE
  2. MOVICOLON [Concomitant]
  3. OTHER MEDICATIONS [Concomitant]

REACTIONS (4)
  - HYPERCAPNIA [None]
  - CHRONIC OBSTRUCTIVE PULMONARY DISEASE [None]
  - COMA [None]
  - DEATH [None]
